FAERS Safety Report 17521246 (Version 1)
Quarter: 2020Q1

REPORT INFORMATION
  Report Type: Spontaneous
  Country: US (occurrence: US)
  Receive Date: 20200310
  Receipt Date: 20200310
  Transmission Date: 20200409
  Serious: Yes (Death)
  Sender: FDA-Public Use
  Company Number: None

PATIENT
  Age: 38 Year
  Sex: Male

DRUGS (2)
  1. ZIPRASIDONE. [Suspect]
     Active Substance: ZIPRASIDONE
     Indication: SCHIZOPHRENIA
     Route: 048
     Dates: start: 20190821, end: 20200101
  2. CLOZAPINE. [Suspect]
     Active Substance: CLOZAPINE
     Indication: SCHIZOPHRENIA
     Route: 048
     Dates: start: 20190402, end: 20200101

REACTIONS (2)
  - Cardiomegaly [None]
  - Hypertension [None]

NARRATIVE: CASE EVENT DATE: 20200101
